FAERS Safety Report 20370204 (Version 1)
Quarter: 2022Q1

REPORT INFORMATION
  Report Type: Spontaneous
  Country: US (occurrence: US)
  Receive Date: 20220124
  Receipt Date: 20220124
  Transmission Date: 20220424
  Serious: No
  Sender: FDA-Public Use
  Company Number: US-PERRIGO-21US010215

PATIENT
  Age: 76 Year
  Sex: Male
  Weight: 77.098 kg

DRUGS (5)
  1. IBUPROFEN [Suspect]
     Active Substance: IBUPROFEN
     Indication: Pyrexia
     Dosage: 200 MG, SINGLE
     Route: 048
     Dates: start: 20210719, end: 20210719
  2. IBUPROFEN [Suspect]
     Active Substance: IBUPROFEN
     Dosage: 400 MG, SINGLE
     Route: 048
     Dates: start: 20210720, end: 20210720
  3. IBUPROFEN [Suspect]
     Active Substance: IBUPROFEN
     Dosage: 400 MG, TWICE
     Route: 048
     Dates: start: 20210721, end: 20210721
  4. PRASUGREL [Concomitant]
     Active Substance: PRASUGREL
     Indication: Anticoagulant therapy
     Dosage: UNKNOWN, UNKNOWN
     Route: 065
     Dates: start: 2020
  5. XARELTO [Concomitant]
     Active Substance: RIVAROXABAN
     Indication: Anticoagulant therapy
     Dosage: 15 MG, UNKNOWN
     Route: 065
     Dates: start: 2020

REACTIONS (2)
  - Rash [Not Recovered/Not Resolved]
  - Epistaxis [Recovering/Resolving]

NARRATIVE: CASE EVENT DATE: 20210719
